FAERS Safety Report 8597617-X (Version None)
Quarter: 2012Q3

REPORT INFORMATION
  Report Type: 
  Country: None (occurrence: None)
  Receive Date: 20120816
  Receipt Date: 20071005
  Transmission Date: 20120928
  Serious: Yes (Other)
  Sender: FDA-Public Use
  Company Number: CO-PFIZER INC-2012199826

PATIENT
  Age: 71 Year
  Sex: Male

DRUGS (8)
  1. METOPROLOL TARTRATE [Concomitant]
     Dosage: 50 MG EVERY 12 HOURS
  2. AMIODARONE HYDROCHLORIDE [Concomitant]
     Dosage: 200 MG EVERY 24 HOURS
  3. ASPIRIN [Concomitant]
     Dosage: 100 MG, EVERY 24 HOURS
  4. ACCUPRIL [Suspect]
     Indication: HYPERTENSION
     Dosage: 20 MG EVERY 24 HOURS
  5. LOVASTATIN [Concomitant]
     Dosage: 20 MG EVERY 24 HOURS
  6. TRAZODONE HYDROCHLORIDE [Concomitant]
     Dosage: 20 MG EVERY 24 HOURS
  7. SPIRONOLACTONE [Concomitant]
     Dosage: 25 MG EVERY 24 HOURS
  8. LIPITOR [Suspect]
     Indication: DYSLIPIDAEMIA
     Dosage: 20 MG EVERY 24 HOURS

REACTIONS (1)
  - ANGIOPATHY [None]
